FAERS Safety Report 9392765 (Version 1)
Quarter: 2013Q3

REPORT INFORMATION
  Report Type: Spontaneous
  Country: US (occurrence: US)
  Receive Date: 20130710
  Receipt Date: 20130710
  Transmission Date: 20140515
  Serious: No
  Sender: FDA-Public Use
  Company Number: US-009507513-1306USA014673

PATIENT
  Sex: Female

DRUGS (11)
  1. PEGINTRON [Suspect]
     Indication: HEPATITIS C
     Dosage: 120 MICROGRAM, QW
     Route: 058
     Dates: start: 20120526, end: 20121027
  2. RIBAVIRIN [Suspect]
     Dosage: 600 MG IN THE MORING WITH 400 MG IN EVENING
     Route: 048
  3. RIBAVIRIN [Suspect]
     Dosage: 400 MG IN MORING AND 400 MG IN EVENING
     Route: 048
     Dates: end: 20121102
  4. PROCRIT [Concomitant]
  5. METHADONE HYDROCHLORIDE [Concomitant]
  6. ZOFRAN [Concomitant]
  7. PRILOSEC [Concomitant]
     Route: 048
  8. PROTONIX [Concomitant]
  9. COMPAZINE [Concomitant]
  10. ZANTAC [Concomitant]
  11. TRIDERM (TRIAMCINOLONE ACETONIDE) [Concomitant]

REACTIONS (1)
  - Maternal exposure before pregnancy [Unknown]
